FAERS Safety Report 9995399 (Version 2)
Quarter: 2014Q1

REPORT INFORMATION
  Report Type: Spontaneous
  Country: GB (occurrence: None)
  Receive Date: 20140307
  Receipt Date: 20140314
  Transmission Date: 20141002
  Serious: Yes (Other)
  Sender: FDA-Public Use
  Company Number: AUR-APL-2014-02453

PATIENT
  Age: 69 Year
  Sex: Male
  Weight: 96 kg

DRUGS (5)
  1. RAMIPRIL (RAMIPRIL) [Suspect]
     Indication: PRODUCT USED FOR UNKNOWN INDICATION
     Dates: start: 20131029
  2. CO-CODAMOL (PANADEINE CO) [Concomitant]
  3. DICLOFENAC SODIUM (DICLOFENAC SODIUM) [Concomitant]
  4. LOSARTAN (LOSARTAN) [Concomitant]
  5. OMEPRAZOLE (OMPERAZOLE) [Concomitant]

REACTIONS (3)
  - Gingival swelling [None]
  - Tooth disorder [None]
  - Gingival pain [None]
